FAERS Safety Report 7341288-7 (Version None)
Quarter: 2011Q1

REPORT INFORMATION
  Report Type: 
  Country: None (occurrence: None)
  Receive Date: 20110309
  Receipt Date: 20110307
  Transmission Date: 20110831
  Serious: Yes (Life-Threatening, Hospitalization)
  Sender: FDA-Public Use
  Company Number: PHHO2011FR02230

PATIENT
  Sex: Female

DRUGS (6)
  1. STI571/CGP57148B [Suspect]
     Indication: ACUTE LYMPHOCYTIC LEUKAEMIA
     Dosage: UNK
     Route: 048
     Dates: start: 20110118, end: 20110131
  2. FORTUM [Concomitant]
  3. PRIMPERAN TAB [Concomitant]
  4. DEXAMETHASONE [Suspect]
     Indication: ACUTE LYMPHOCYTIC LEUKAEMIA
     Dosage: UNK
     Dates: start: 20110120
  5. CYCLOPHOSPHAMIDE [Suspect]
     Indication: ACUTE LYMPHOCYTIC LEUKAEMIA
     Dosage: UNK
     Dates: start: 20110120
  6. MORPHINE [Concomitant]

REACTIONS (5)
  - BONE MARROW FAILURE [None]
  - COLITIS ULCERATIVE [None]
  - SEPSIS [None]
  - PERITONITIS [None]
  - COLECTOMY [None]
